FAERS Safety Report 7728599-8 (Version None)
Quarter: 2011Q3

REPORT INFORMATION
  Report Type: 
  Country: None (occurrence: None)
  Receive Date: 20110831
  Receipt Date: 20110831
  Transmission Date: 20111222
  Serious: Yes (Hospitalization)
  Sender: FDA-Public Use
  Company Number: None

PATIENT
  Age: 59 Year
  Sex: Male
  Weight: 79.3795 kg

DRUGS (9)
  1. ADVAIR DISKUS 100/50 [Concomitant]
  2. PROGRAF [Suspect]
     Indication: GRAFT VERSUS HOST DISEASE
     Dosage: 0.5 MG PO QD
     Route: 048
     Dates: start: 20100401
  3. AVODART [Concomitant]
  4. PRILOSEC [Concomitant]
  5. ITRACONAZOLE [Concomitant]
  6. ACYCLOVIR [Concomitant]
  7. AMLODIPINE [Concomitant]
  8. SLOW MAGNESIUM [Concomitant]
  9. DAPSONE [Concomitant]

REACTIONS (4)
  - RESPIRATORY FAILURE [None]
  - ACUTE GRAFT VERSUS HOST DISEASE IN SKIN [None]
  - PNEUMONIA [None]
  - EMPHYSEMA [None]
